FAERS Safety Report 9029668 (Version 1)
Quarter: 2013Q1

REPORT INFORMATION
  Report Type: Spontaneous
  Country: AR (occurrence: AR)
  Receive Date: 20130125
  Receipt Date: 20130125
  Transmission Date: 20140127
  Serious: Yes (Hospitalization, Other)
  Sender: FDA-Public Use
  Company Number: PHHY2013AR006637

PATIENT
  Sex: Female

DRUGS (3)
  1. DIOVAN [Suspect]
     Indication: HYPERTENSION
     Dosage: 2 DF(160 MG), DAILY
     Route: 048
  2. DIOVAN [Suspect]
     Dosage: 1 DF(160 MG), DAILY
     Route: 048
  3. GALVUS [Suspect]
     Indication: DIABETES MELLITUS
     Dosage: 1 DF(50 MG), UNK
     Route: 048
     Dates: start: 2010, end: 2011

REACTIONS (1)
  - Breast cancer [Recovering/Resolving]
